FAERS Safety Report 25940479 (Version 1)
Quarter: 2025Q4

REPORT INFORMATION
  Report Type: Report from Study
  Country: US (occurrence: US)
  Receive Date: 20251020
  Receipt Date: 20251020
  Transmission Date: 20260118
  Serious: Yes (Other)
  Sender: ALEXION PHARMACEUTICALS
  Company Number: US-AstraZeneca-CH-00972634A

PATIENT
  Sex: Female

DRUGS (1)
  1. ACALABRUTINIB [Suspect]
     Active Substance: ACALABRUTINIB
     Indication: Chronic lymphocytic leukaemia
     Dosage: 100 MILLIGRAM, BID

REACTIONS (9)
  - Ankle fracture [Unknown]
  - Joint swelling [Unknown]
  - Arthralgia [Unknown]
  - Weight decreased [Unknown]
  - Spinal stenosis [Unknown]
  - Hepatitis C [Unknown]
  - Corneal disorder [Unknown]
  - Mobility decreased [Unknown]
  - Depression [Unknown]
